FAERS Safety Report 7027184-3 (Version None)
Quarter: 2010Q4

REPORT INFORMATION
  Report Type: 
  Country: None (occurrence: None)
  Receive Date: 20101004
  Receipt Date: 20100921
  Transmission Date: 20110411
  Serious: No
  Sender: FDA-Public Use
  Company Number: US-PFIZER INC-2010120757

PATIENT
  Sex: Female
  Weight: 79.819 kg

DRUGS (5)
  1. AROMASIN [Suspect]
     Indication: BREAST CANCER FEMALE
     Dosage: 25 MG, DAILY
     Route: 048
  2. HYZAAR [Concomitant]
     Indication: BLOOD PRESSURE ABNORMAL
     Dosage: 50 MG/ 12.5 MG, DAILY
     Route: 048
  3. CRESTOR [Concomitant]
     Indication: BLOOD CHOLESTEROL ABNORMAL
     Dosage: 5 MG, DAILY
     Route: 048
  4. MIACALCIN [Concomitant]
     Indication: BONE DISORDER
     Dosage: 3.7 MG, DAILY
     Route: 045
  5. SYNTHROID [Concomitant]
     Indication: THYROID DISORDER
     Dosage: 50 MG, DAILY
     Route: 048

REACTIONS (1)
  - NAUSEA [None]
